FAERS Safety Report 26045456 (Version 1)
Quarter: 2025Q4

REPORT INFORMATION
  Report Type: Spontaneous
  Country: US (occurrence: US)
  Receive Date: 20251114
  Receipt Date: 20251114
  Transmission Date: 20260117
  Serious: Yes (Life-Threatening, Hospitalization, Other)
  Sender: BAXTER
  Company Number: US-BAXTER-2025BAX023826

PATIENT
  Age: 60 Year
  Sex: Female

DRUGS (8)
  1. METOPROLOL TARTRATE [Suspect]
     Active Substance: METOPROLOL TARTRATE
     Dosage: UNK
     Route: 065
  2. VENLAFAXINE [Suspect]
     Active Substance: VENLAFAXINE HYDROCHLORIDE
     Dosage: UNK
     Route: 065
  3. CAFFEINE [Concomitant]
     Active Substance: CAFFEINE
  4. LISINOPRIL [Concomitant]
     Active Substance: LISINOPRIL
     Dosage: UNK
  5. PREGABALIN [Concomitant]
     Active Substance: PREGABALIN
  6. ONDANSETRON [Concomitant]
     Active Substance: ONDANSETRON
     Dosage: UNK
     Route: 065
  7. ROSUVASTATIN [Concomitant]
     Active Substance: ROSUVASTATIN
     Dosage: UNK
  8. TRAZODONE [Concomitant]
     Active Substance: TRAZODONE HYDROCHLORIDE
     Dosage: UNK

REACTIONS (14)
  - Hypotension [Recovered/Resolved]
  - Bradycardia [Recovered/Resolved]
  - Electrocardiogram QRS complex prolonged [Recovered/Resolved]
  - Unresponsive to stimuli [Recovered/Resolved]
  - Hypothermia [Recovered/Resolved]
  - Pulseless electrical activity [Recovered/Resolved]
  - Ventricular tachycardia [Recovered/Resolved]
  - Ventricular dysfunction [Recovered/Resolved]
  - Intestinal ischaemia [Recovered/Resolved]
  - Pneumonia aspiration [Unknown]
  - Renal failure [Unknown]
  - Ischaemic hepatitis [Recovered/Resolved]
  - Drug level increased [Unknown]
  - Intentional overdose [Unknown]
